FAERS Safety Report 21732155 (Version 2)
Quarter: 2022Q4

REPORT INFORMATION
  Report Type: Report from Study
  Country: US (occurrence: US)
  Receive Date: 20221215
  Receipt Date: 20221221
  Transmission Date: 20230112
  Serious: No
  Sender: FDA-Public Use
  Company Number: US-002147023-NVSC2022US290571

PATIENT
  Sex: Female

DRUGS (1)
  1. ENTRESTO [Suspect]
     Active Substance: SACUBITRIL\VALSARTAN
     Indication: Product used for unknown indication
     Dosage: UNK UNK, BID (24/26MG)
     Route: 048
     Dates: start: 2022

REACTIONS (4)
  - Dizziness [Unknown]
  - Swelling [Not Recovered/Not Resolved]
  - Underdose [Unknown]
  - Product use issue [Unknown]
